FAERS Safety Report 6937727-3 (Version None)
Quarter: 2010Q3

REPORT INFORMATION
  Report Type: 
  Country: None (occurrence: None)
  Receive Date: 20100820
  Receipt Date: 20100820
  Transmission Date: 20110219
  Serious: No
  Sender: FDA-Public Use
  Company Number: None

PATIENT
  Age: 49 Year
  Sex: Female

DRUGS (6)
  1. LANOXIN [Suspect]
     Indication: CARDIAC FAILURE CONGESTIVE
     Dosage: 125 MCG. ONCE DAILY ORAL
     Route: 048
     Dates: start: 20080101, end: 20090101
  2. LANOXIN [Suspect]
     Indication: CARDIOMYOPATHY
     Dosage: 125 MCG. ONCE DAILY ORAL
     Route: 048
     Dates: start: 20080101, end: 20090101
  3. COREG [Concomitant]
  4. ZESTRIL [Concomitant]
  5. LASIX [Concomitant]
  6. LEVOXYL [Concomitant]

REACTIONS (7)
  - AGITATION [None]
  - DIZZINESS [None]
  - DRUG HYPERSENSITIVITY [None]
  - HYPOAESTHESIA FACIAL [None]
  - NASAL CONGESTION [None]
  - PRODUCT SUBSTITUTION ISSUE [None]
  - SWELLING FACE [None]
